FAERS Safety Report 5247106-5 (Version None)
Quarter: 2007Q1

REPORT INFORMATION
  Report Type: 
  Country: None (occurrence: None)
  Receive Date: 20070226
  Receipt Date: 20070216
  Transmission Date: 20070707
  Serious: Yes (Other)
  Sender: FDA-Public Use
  Company Number: DE-MERCK-0701DEU00052

PATIENT
  Sex: Male

DRUGS (3)
  1. FOSAMAX [Suspect]
     Route: 048
     Dates: end: 20070101
  2. PHENPROCOUMON [Concomitant]
     Indication: THROMBOSIS
     Route: 048
     Dates: start: 20060101
  3. CHOLECALCIFEROL [Concomitant]
     Route: 065
     Dates: end: 20070101

REACTIONS (3)
  - PROTHROMBIN TIME SHORTENED [None]
  - PULMONARY EMBOLISM [None]
  - THROMBOSIS [None]
